FAERS Safety Report 8296547-0 (Version None)
Quarter: 2012Q2

REPORT INFORMATION
  Report Type: 
  Country: None (occurrence: None)
  Receive Date: 20120418
  Receipt Date: 20120416
  Transmission Date: 20120825
  Serious: Yes (Death, Hospitalization)
  Sender: FDA-Public Use
  Company Number: US-B.I. PHARMACEUTICALS,INC./RIDGEFIELD-2011-BP-01802BP

PATIENT
  Age: 66 Year
  Sex: Female
  Weight: 123 kg

DRUGS (9)
  1. INSULIN GLARGINE [Concomitant]
  2. FLUTICASONE PROPIONATE/SALMETEROL [Concomitant]
  3. GLIPIZIDE [Concomitant]
  4. PRAVASTATIN [Concomitant]
  5. METFORMIN HCL [Concomitant]
  6. METOPROLOL TARTRATE [Concomitant]
  7. PRADAXA [Suspect]
     Indication: ATRIAL FIBRILLATION
     Dosage: 300 MG
     Route: 048
  8. HYDROCHLOROTHIAZIDE [Concomitant]
  9. POTASSIUM CHLORIDE [Concomitant]

REACTIONS (9)
  - DEATH [None]
  - UPPER GASTROINTESTINAL HAEMORRHAGE [None]
  - INTERNATIONAL NORMALISED RATIO INCREASED [None]
  - EPISTAXIS [None]
  - RENAL FAILURE ACUTE [None]
  - PROTHROMBIN TIME PROLONGED [None]
  - BLOOD CREATININE INCREASED [None]
  - THROMBIN TIME PROLONGED [None]
  - GASTROINTESTINAL HAEMORRHAGE [None]
